FAERS Safety Report 12907779 (Version 1)
Quarter: 2016Q4

REPORT INFORMATION
  Report Type: Spontaneous
  Country: US (occurrence: US)
  Receive Date: 20161103
  Receipt Date: 20161103
  Transmission Date: 20170207
  Serious: Yes (Other)
  Sender: FDA-Public Use
  Company Number: US-BAYER-2016-206012

PATIENT
  Age: 54 Year
  Sex: Female

DRUGS (2)
  1. IODINE. [Suspect]
     Active Substance: IODINE
  2. BAYER GENUINE ASPIRIN [Suspect]
     Active Substance: ASPIRIN

REACTIONS (2)
  - Coma [Unknown]
  - Drug hypersensitivity [None]

NARRATIVE: CASE EVENT DATE: 20130401
